FAERS Safety Report 9441658 (Version 2)
Quarter: 2013Q4

REPORT INFORMATION
  Report Type: Spontaneous
  Country: US (occurrence: US)
  Receive Date: 20130806
  Receipt Date: 20131118
  Transmission Date: 20140711
  Serious: Yes (Hospitalization)
  Sender: FDA-Public Use
  Company Number: US-BIOGENIDEC-2013BI071482

PATIENT
  Age: 23 Year
  Sex: Female

DRUGS (3)
  1. AVONEX [Suspect]
     Indication: RELAPSING-REMITTING MULTIPLE SCLEROSIS
     Route: 030
     Dates: start: 20121205
  2. NIFEDIPINE [Concomitant]
     Dates: start: 20130401
  3. ADVIL [Concomitant]
     Indication: HEADACHE

REACTIONS (4)
  - Avulsion fracture [Recovered/Resolved]
  - Foot fracture [Not Recovered/Not Resolved]
  - Gait disturbance [Not Recovered/Not Resolved]
  - Headache [Unknown]
